FAERS Safety Report 14850871 (Version 4)
Quarter: 2018Q2

REPORT INFORMATION
  Report Type: Spontaneous
  Country: US (occurrence: US)
  Receive Date: 20180506
  Receipt Date: 20180615
  Transmission Date: 20180711
  Serious: No
  Sender: FDA-Public Use
  Company Number: US-JNJFOC-20180431771

PATIENT
  Sex: Male
  Weight: 95.26 kg

DRUGS (1)
  1. FENTANYL TRANSDERMAL SYSTEM [Suspect]
     Active Substance: FENTANYL
     Indication: PAIN
     Route: 062
     Dates: start: 201702, end: 20180417

REACTIONS (5)
  - Withdrawal syndrome [Unknown]
  - Malaise [Unknown]
  - Disturbance in attention [Unknown]
  - Product availability issue [Unknown]
  - Pain [Unknown]

NARRATIVE: CASE EVENT DATE: 2018
